FAERS Safety Report 5599444-4 (Version None)
Quarter: 2008Q1

REPORT INFORMATION
  Report Type: 
  Country: None (occurrence: None)
  Receive Date: 20080122
  Receipt Date: 20080114
  Transmission Date: 20080703
  Serious: Yes (Hospitalization)
  Sender: FDA-Public Use
  Company Number: IN-PFIZER INC-2008005145

PATIENT
  Sex: Female
  Weight: 60 kg

DRUGS (2)
  1. SUTENT [Suspect]
     Indication: GASTROINTESTINAL STROMAL TUMOUR
     Route: 048
     Dates: start: 20071115, end: 20071215
  2. SUTENT [Suspect]
     Route: 048
     Dates: start: 20071230, end: 20080111

REACTIONS (3)
  - ERYTHEMA [None]
  - SKIN LESION [None]
  - TELANGIECTASIA [None]
